FAERS Safety Report 5028162-6 (Version None)
Quarter: 2006Q2

REPORT INFORMATION
  Report Type: 
  Country: None (occurrence: None)
  Receive Date: 20060613
  Receipt Date: 20060531
  Transmission Date: 20061013
  Serious: Yes (Hospitalization)
  Sender: FDA-Public Use
  Company Number: 163-21880-06050492

PATIENT
  Age: 69 Year
  Sex: Male
  Weight: 101.6057 kg

DRUGS (5)
  1. REVLIMID [Suspect]
     Indication: MYELODYSPLASTIC SYNDROME
     Dosage: 5 MG, DAILY, ORAL
     Route: 048
     Dates: start: 20060501, end: 20060512
  2. PROSCAR [Concomitant]
  3. FLOMAX [Concomitant]
  4. ZESTRIL [Concomitant]
  5. IBUPROFEN [Concomitant]

REACTIONS (8)
  - ABDOMINAL PAIN UPPER [None]
  - ABNORMAL FAECES [None]
  - ASTHENIA [None]
  - EATING DISORDER [None]
  - FAECES DISCOLOURED [None]
  - HEADACHE [None]
  - PAIN [None]
  - STOMACH DISCOMFORT [None]
